FAERS Safety Report 11256255 (Version 5)
Quarter: 2015Q4

REPORT INFORMATION
  Report Type: Report from Study
  Country: US (occurrence: US)
  Receive Date: 20150709
  Receipt Date: 20151217
  Transmission Date: 20160304
  Serious: Yes (Hospitalization, Other)
  Sender: FDA-Public Use
  Company Number: US-TAKEDA-2015TEU005532

PATIENT
  Age: 74 Year
  Sex: Male
  Weight: 91.6 kg

DRUGS (19)
  1. ADVAIR HFA [Concomitant]
     Active Substance: FLUTICASONE PROPIONATE\SALMETEROL XINAFOATE
     Dosage: UNK
     Route: 055
     Dates: start: 20140107
  2. CARDIZEM CD [Concomitant]
     Active Substance: DILTIAZEM HYDROCHLORIDE
     Dosage: 300 MG, QD
     Route: 048
     Dates: start: 20130721
  3. FINASTERIDE. [Concomitant]
     Active Substance: FINASTERIDE
     Dosage: 5 MG, QD
     Route: 048
     Dates: start: 20131104
  4. DIGOXIN. [Concomitant]
     Active Substance: DIGOXIN
     Dosage: 125 ?G, QD
     Route: 048
     Dates: start: 20141002
  5. FIBRINOGEN, THROMBIN [Suspect]
     Active Substance: FIBRINOGEN HUMAN\THROMBIN HUMAN
     Indication: HAEMOSTASIS
     Dosage: UNK
     Route: 061
     Dates: start: 20150526
  6. LORTADINE [Concomitant]
     Dosage: 10 MG, QD
     Route: 048
     Dates: start: 20131104
  7. MAGNESIUM [Concomitant]
     Active Substance: MAGNESIUM
     Indication: NUTRITIONAL SUPPLEMENTATION
     Dosage: 500 MG, QD
     Route: 048
     Dates: start: 20131104
  8. ZOLPIDEM [Concomitant]
     Active Substance: ZOLPIDEM\ZOLPIDEM TARTRATE
     Dosage: 10 MG, QD
     Route: 048
     Dates: start: 20130927
  9. TYLENOL # 3                           /00020001/ [Concomitant]
     Dosage: UNK
     Route: 048
     Dates: start: 20130921
  10. ALLOPURINOL. [Concomitant]
     Active Substance: ALLOPURINOL
     Dosage: 150 MG, QD
     Route: 048
     Dates: start: 20131104
  11. AMITRIPTYLINE [Concomitant]
     Active Substance: AMITRIPTYLINE
     Dosage: 25 MG, QD
     Route: 048
     Dates: start: 20131104
  12. LANTUS [Concomitant]
     Active Substance: INSULIN GLARGINE
     Dosage: 20 UNITS, QD
     Route: 058
     Dates: start: 20131107
  13. CELEBREX [Concomitant]
     Active Substance: CELECOXIB
     Dosage: 200 MG, QD
     Route: 048
     Dates: start: 20150406
  14. COLCRYS [Concomitant]
     Active Substance: COLCHICINE
     Dosage: 0.6 MG, QD
     Route: 048
     Dates: start: 20141211
  15. LOSARTAN. [Concomitant]
     Active Substance: LOSARTAN
     Dosage: 12.5 MG, QD
     Route: 048
     Dates: start: 20131104
  16. PROBIOTIC                          /06395501/ [Concomitant]
     Active Substance: BIFIDOBACTERIUM ANIMALIS SUBSP. LACTIS
     Indication: NUTRITIONAL SUPPLEMENTATION
     Dosage: 1 DF, QD
     Route: 048
     Dates: start: 20150406
  17. LOVASTATIN. [Concomitant]
     Active Substance: LOVASTATIN
     Dosage: 40 MG, QD
     Route: 048
     Dates: start: 20131104
  18. PLAVIX [Concomitant]
     Active Substance: CLOPIDOGREL BISULFATE
     Dosage: 75 MG, QD
     Route: 048
     Dates: start: 20150527
  19. WARFARIN [Concomitant]
     Active Substance: WARFARIN
     Dosage: 10 MG, QD
     Route: 048
     Dates: start: 20110716

REACTIONS (2)
  - Cellulitis [Recovered/Resolved]
  - Arthritis bacterial [Recovered/Resolved]

NARRATIVE: CASE EVENT DATE: 20150626
